FAERS Safety Report 6032882-4 (Version None)
Quarter: 2009Q1

REPORT INFORMATION
  Report Type: 
  Country: None (occurrence: None)
  Receive Date: 20090109
  Receipt Date: 20090107
  Transmission Date: 20090719
  Serious: Yes (Hospitalization)
  Sender: FDA-Public Use
  Company Number: CA-ABBOTT-08P-028-0477402-00

PATIENT
  Sex: Female
  Weight: 68.1 kg

DRUGS (15)
  1. HUMIRA [Suspect]
     Indication: CROHN'S DISEASE
     Route: 058
     Dates: start: 20080714
  2. PREDNISONE [Concomitant]
     Indication: DRUG USE FOR UNKNOWN INDICATION
  3. SPARIVA PUFFER [Concomitant]
     Indication: DRUG USE FOR UNKNOWN INDICATION
  4. AZATHIOPRINE [Concomitant]
     Indication: DRUG USE FOR UNKNOWN INDICATION
  5. PREVACID [Concomitant]
     Indication: DRUG USE FOR UNKNOWN INDICATION
  6. FENOFIBRATE [Concomitant]
     Indication: DRUG USE FOR UNKNOWN INDICATION
  7. SUPRA [Concomitant]
     Indication: DRUG USE FOR UNKNOWN INDICATION
  8. VENLAFAXINE HCL [Concomitant]
     Indication: DRUG USE FOR UNKNOWN INDICATION
  9. OXYCONTIN [Concomitant]
     Indication: DRUG USE FOR UNKNOWN INDICATION
  10. OXYCET [Concomitant]
     Indication: DRUG USE FOR UNKNOWN INDICATION
  11. ALBUTEROL [Concomitant]
     Indication: DRUG USE FOR UNKNOWN INDICATION
  12. DIDRONEL [Concomitant]
     Indication: DRUG USE FOR UNKNOWN INDICATION
  13. CLONAZEPAM [Concomitant]
     Indication: DRUG USE FOR UNKNOWN INDICATION
  14. TIMOLOL EYE DROPS [Concomitant]
     Indication: DRUG USE FOR UNKNOWN INDICATION
  15. BENADRYL [Concomitant]
     Indication: DRUG USE FOR UNKNOWN INDICATION

REACTIONS (2)
  - ANGINA PECTORIS [None]
  - CROHN'S DISEASE [None]
